FAERS Safety Report 9175006 (Version 7)
Quarter: 2014Q1

REPORT INFORMATION
  Report Type: Report from Study
  Country: JP (occurrence: JP)
  Receive Date: 20130320
  Receipt Date: 20140212
  Transmission Date: 20141002
  Serious: Yes (Hospitalization)
  Sender: FDA-Public Use
  Company Number: JP-GLAXOSMITHKLINE-B0873040A

PATIENT
  Age: 63 Year
  Sex: Male

DRUGS (16)
  1. VOTRIENT 200MG [Suspect]
     Indication: ANGIOSARCOMA
     Dosage: 800MG PER DAY
     Route: 048
     Dates: start: 20130208, end: 20130225
  2. VOTRIENT 200MG [Suspect]
     Indication: ANGIOSARCOMA
     Dosage: 600MG PER DAY
     Route: 048
     Dates: start: 20130319, end: 20130405
  3. VOTRIENT 200MG [Suspect]
     Indication: ANGIOSARCOMA
     Dosage: 400MG PER DAY
     Route: 048
     Dates: start: 20130419, end: 20130902
  4. VOTRIENT 200MG [Suspect]
     Indication: ANGIOSARCOMA
     Dosage: 200MG PER DAY
     Route: 048
     Dates: start: 20130903, end: 20131114
  5. VOTRIENT 200MG [Suspect]
     Indication: ANGIOSARCOMA
     Dosage: 200MG PER DAY
     Route: 048
     Dates: start: 20131122, end: 20140115
  6. VOTRIENT 200MG [Suspect]
     Indication: ANGIOSARCOMA
     Dosage: 600MG PER DAY
     Route: 048
     Dates: start: 20140116
  7. MICARDIS [Concomitant]
     Indication: HYPERTENSION
     Dosage: 60MG PER DAY
     Route: 048
  8. ALLOPURINOL [Concomitant]
     Indication: ANGIOSARCOMA
     Route: 048
  9. LIPITOR [Concomitant]
     Indication: ANGIOSARCOMA
     Route: 048
  10. FUROSEMIDE [Concomitant]
     Indication: OEDEMA
     Route: 065
  11. ADALAT [Concomitant]
     Indication: ANGIOSARCOMA
     Route: 048
  12. LOXOPROFEN [Concomitant]
     Indication: PAIN
     Route: 048
  13. CYTOTEC [Concomitant]
     Indication: GASTRIC ULCER
     Route: 048
  14. MYSLEE [Concomitant]
     Indication: INSOMNIA
     Route: 048
  15. DERMOVATE [Concomitant]
     Indication: RASH
     Route: 061
  16. CODEINE PHOSPHATE [Concomitant]
     Indication: PAIN
     Route: 048

REACTIONS (7)
  - Pancytopenia [Recovering/Resolving]
  - Protein urine [Not Recovered/Not Resolved]
  - Hepatic enzyme increased [Recovering/Resolving]
  - Blood thyroid stimulating hormone increased [Not Recovered/Not Resolved]
  - Hypertension [Recovering/Resolving]
  - Platelet count decreased [Recovering/Resolving]
  - Impaired healing [Not Recovered/Not Resolved]
